FAERS Safety Report 13571647 (Version 1)
Quarter: 2017Q2

REPORT INFORMATION
  Report Type: Spontaneous
  Country: US (occurrence: US)
  Receive Date: 20170522
  Receipt Date: 20170522
  Transmission Date: 20170830
  Serious: No
  Sender: FDA-Public Use
  Company Number: None

PATIENT
  Age: 48 Year
  Sex: Female

DRUGS (1)
  1. MYCOPHENOLATE MOF TAB 500MG [Suspect]
     Active Substance: MYCOPHENOLATE MOFETIL

REACTIONS (9)
  - Dizziness [None]
  - Malaise [None]
  - Nausea [None]
  - Cold sweat [None]
  - Tongue disorder [None]
  - Disturbance in attention [None]
  - Gait disturbance [None]
  - Pain [None]
  - Dry mouth [None]

NARRATIVE: CASE EVENT DATE: 20170522
